FAERS Safety Report 4771027-5 (Version None)
Quarter: 2005Q3

REPORT INFORMATION
  Report Type: 
  Country: None (occurrence: None)
  Receive Date: 20050914
  Receipt Date: 20050831
  Transmission Date: 20060218
  Serious: Yes (Other)
  Sender: FDA-Public Use
  Company Number: 8011625

PATIENT
  Age: 6 Year
  Sex: Male

DRUGS (4)
  1. KEPPRA [Suspect]
     Indication: EPILEPSY
     Dosage: 1000 MG/D
     Dates: start: 20050501
  2. OXCARBAZEPINE [Concomitant]
  3. STEROIDS [Concomitant]
  4. PROPRANOLOL [Concomitant]

REACTIONS (1)
  - CHOLESTASIS [None]
